FAERS Safety Report 9808605 (Version 15)
Quarter: 2019Q3

REPORT INFORMATION
  Report Type: Spontaneous
  Country: US (occurrence: US)
  Receive Date: 20140110
  Receipt Date: 20190703
  Transmission Date: 20191005
  Serious: Yes (Other)
  Sender: FDA-Public Use
  Company Number: US-PFIZER INC-2014007570

PATIENT
  Age: 59 Year
  Sex: Female
  Weight: 102 kg

DRUGS (13)
  1. XANAX [Concomitant]
     Active Substance: ALPRAZOLAM
     Dosage: UNK
  2. LYRICA [Suspect]
     Active Substance: PREGABALIN
     Indication: FIBROMYALGIA
     Dosage: 75 MG, 2X/DAY
  3. LYRICA [Suspect]
     Active Substance: PREGABALIN
     Indication: DEPRESSION
     Dosage: 50 MG, UNK
  4. ESTROPIPATE. [Concomitant]
     Active Substance: ESTROPIPATE
     Indication: HORMONE THERAPY
     Dosage: UNK
  5. PAXIL [Concomitant]
     Active Substance: PAROXETINE HYDROCHLORIDE
     Dosage: UNK
  6. LYRICA [Suspect]
     Active Substance: PREGABALIN
     Indication: NEURALGIA
     Dosage: 75 MG, 2X/DAY
     Route: 048
     Dates: start: 2011
  7. LYRICA [Suspect]
     Active Substance: PREGABALIN
     Dosage: 75 MG, DAILY
  8. LYRICA [Suspect]
     Active Substance: PREGABALIN
     Dosage: 2 TO 3 CAPSULES DAILY
     Route: 048
  9. LEVOTHYROXINE. [Concomitant]
     Active Substance: LEVOTHYROXINE
     Indication: THYROID DISORDER
     Dosage: 0.125 UG, UNK
  10. PAROXETINE. [Concomitant]
     Active Substance: PAROXETINE
     Dosage: UNK
  11. ALPRAZOLAM. [Concomitant]
     Active Substance: ALPRAZOLAM
     Dosage: UNK
  12. LYRICA [Suspect]
     Active Substance: PREGABALIN
     Indication: OSTEOARTHRITIS
     Dosage: 2 DF, DAILY
  13. LYRICA [Suspect]
     Active Substance: PREGABALIN
     Dosage: UNK
     Dates: start: 20170809

REACTIONS (25)
  - Cataract [Unknown]
  - Visual impairment [Unknown]
  - Fungal skin infection [Unknown]
  - Dyspnoea [Unknown]
  - Intentional product misuse [Unknown]
  - Vision blurred [Unknown]
  - Rash [Unknown]
  - Weight decreased [Unknown]
  - Somnolence [Unknown]
  - Frustration tolerance decreased [Not Recovered/Not Resolved]
  - Fall [Unknown]
  - Fatigue [Unknown]
  - Impaired driving ability [Unknown]
  - Anxiety [Not Recovered/Not Resolved]
  - Panic attack [Unknown]
  - Heat exhaustion [Unknown]
  - Decreased appetite [Unknown]
  - Nervous system disorder [Not Recovered/Not Resolved]
  - Gait inability [Unknown]
  - Malaise [Unknown]
  - Contusion [Unknown]
  - Carpal tunnel syndrome [Unknown]
  - Arthralgia [Unknown]
  - Pain [Unknown]
  - Weight fluctuation [Not Recovered/Not Resolved]

NARRATIVE: CASE EVENT DATE: 20141017
